FAERS Safety Report 26016278 (Version 1)
Quarter: 2025Q4

REPORT INFORMATION
  Report Type: Spontaneous
  Country: EU (occurrence: EU)
  Receive Date: 20251110
  Receipt Date: 20251110
  Transmission Date: 20260119
  Serious: Yes (Other)
  Sender: ASCENDIS PHARMA
  Company Number: EU-ASCENDIS PHARMA-2025EU012731

PATIENT

DRUGS (3)
  1. YORVIPATH [Suspect]
     Active Substance: PALOPEGTERIPARATIDE
     Indication: Post procedural hypoparathyroidism
     Dosage: 18 MICROGRAM, QD
     Route: 065
     Dates: start: 20250703
  2. YORVIPATH [Suspect]
     Active Substance: PALOPEGTERIPARATIDE
     Dosage: 21 MICROGRAM, QD
     Route: 065
     Dates: start: 20250712
  3. LEVOTHYROXINE [Concomitant]
     Active Substance: LEVOTHYROXINE
     Indication: Product used for unknown indication
     Dosage: UNK
     Route: 065

REACTIONS (4)
  - Abortion spontaneous [Unknown]
  - Blood thyroid stimulating hormone increased [Unknown]
  - Blood calcium increased [Unknown]
  - Maternal exposure during pregnancy [Unknown]

NARRATIVE: CASE EVENT DATE: 20251024
